FAERS Safety Report 5050500-9 (Version None)
Quarter: 2006Q3

REPORT INFORMATION
  Report Type: 
  Country: None (occurrence: None)
  Receive Date: 20060713
  Receipt Date: 20060703
  Transmission Date: 20061208
  Serious: Yes (Hospitalization)
  Sender: FDA-Public Use
  Company Number: MX-ROCHE-454139

PATIENT
  Age: 71 Year
  Sex: Female
  Weight: 43 kg

DRUGS (2)
  1. BONIVA [Suspect]
     Indication: OSTEOPOROSIS POSTMENOPAUSAL
     Route: 048
     Dates: start: 20060424, end: 20060613
  2. CELEBREX [Concomitant]
     Dates: start: 20060601, end: 20060608

REACTIONS (3)
  - BONE PAIN [None]
  - GASTROENTERITIS [None]
  - RASH [None]
